FAERS Safety Report 21944499 (Version 1)
Quarter: 2023Q1

REPORT INFORMATION
  Report Type: Spontaneous
  Country: FR (occurrence: FR)
  Receive Date: 20230202
  Receipt Date: 20230202
  Transmission Date: 20230418
  Serious: Yes (Other)
  Sender: FDA-Public Use
  Company Number: None

PATIENT
  Age: 92 Year
  Sex: Female

DRUGS (1)
  1. SCOPOLAMINE [Suspect]
     Active Substance: SCOPOLAMINE
     Indication: Bronchial obstruction
     Dosage: 1 (DF) DOSAGE FORM AND 72 HOURS (SCOPODERM TTS 1 MG/72 HOURS, TRANSDERMAL PATCH)
     Route: 062
     Dates: start: 20221222, end: 20221227

REACTIONS (3)
  - Dehydration [Recovered/Resolved]
  - Confusional state [Recovered/Resolved]
  - Incorrect product administration duration [Recovered/Resolved]

NARRATIVE: CASE EVENT DATE: 20221227
